FAERS Safety Report 16596107 (Version 1)
Quarter: 2019Q3

REPORT INFORMATION
  Report Type: Spontaneous
  Country: DE (occurrence: DE)
  Receive Date: 20190719
  Receipt Date: 20190719
  Transmission Date: 20191004
  Serious: Yes (Hospitalization)
  Sender: FDA-Public Use
  Company Number: DE-ACCORD-139020

PATIENT
  Age: 70 Year
  Sex: Female
  Weight: 68 kg

DRUGS (10)
  1. IFOSFAMIDE. [Suspect]
     Active Substance: IFOSFAMIDE
     Indication: PRODUCT USED FOR UNKNOWN INDICATION
     Dosage: 5000 MG / M2, ACCORDING TO SCHEME, MOST RECENTLY ON 14.03.2018
     Route: 042
  2. HYDROCHLOROTHIAZIDE. [Concomitant]
     Active Substance: HYDROCHLOROTHIAZIDE
     Dosage: 12.5 MG, 1-0-0-0, TABLET
     Route: 048
  3. ETOPOSIDE. [Suspect]
     Active Substance: ETOPOSIDE
     Indication: PRODUCT USED FOR UNKNOWN INDICATION
     Dosage: 100 MG / M2, ACCORDING TO SCHEME, MOST RECENTLY ON 15.03.2018,
     Route: 042
  4. CARBOPLATIN. [Suspect]
     Active Substance: CARBOPLATIN
     Indication: PRODUCT USED FOR UNKNOWN INDICATION
     Dosage: 394 MG, ACCORDING TO SCHEME, MOST RECENTLY ON 14.03.2018
     Route: 042
  5. RAMIPRIL. [Concomitant]
     Active Substance: RAMIPRIL
     Dosage: 2.5 MG, 1-0-0-0, TABLET
     Route: 048
  6. NOVODIGAL [Concomitant]
     Dosage: 0.2 MG, 1-0-0-0, TABLET
     Route: 048
  7. CALCIUM GLUCONATE. [Concomitant]
     Active Substance: CALCIUM GLUCONATE
     Dosage: 500 MG, 1-0-0-0, EFFERVESCENT TABLETS
     Route: 048
  8. PANTOPRAZOLE [Concomitant]
     Active Substance: PANTOPRAZOLE
     Dosage: 20 MG, 1-0-0-0, TABLET
     Route: 048
  9. RITUXIMAB. [Suspect]
     Active Substance: RITUXIMAB
     Indication: PRODUCT USED FOR UNKNOWN INDICATION
     Dosage: 375 MG / M2, ACCORDING TO SCHEME, MOST RECENTLY ON 13.03.2018
     Route: 042
  10. XARELTO [Concomitant]
     Active Substance: RIVAROXABAN
     Dosage: 20 MG, 1-0-0-0, TABLET
     Route: 048

REACTIONS (2)
  - Pyrexia [Unknown]
  - General physical health deterioration [Unknown]
